FAERS Safety Report 15103629 (Version 3)
Quarter: 2018Q3

REPORT INFORMATION
  Report Type: Spontaneous
  Country: MM (occurrence: MM)
  Receive Date: 20180703
  Receipt Date: 20180806
  Transmission Date: 20181010
  Serious: Yes (Hospitalization, Other)
  Sender: FDA-Public Use
  Company Number: MM-JNJFOC-20180526703

PATIENT
  Age: 50 Year
  Sex: Male
  Weight: 52 kg

DRUGS (18)
  1. BEDAQUILINE [Suspect]
     Active Substance: BEDAQUILINE
     Indication: TUBERCULOSIS
     Route: 048
     Dates: start: 20171128, end: 20180516
  2. DELAMANID [Suspect]
     Active Substance: DELAMANID
     Indication: TUBERCULOSIS
     Route: 048
     Dates: start: 20171107, end: 20180516
  3. METFORMIN [Concomitant]
     Active Substance: METFORMIN HYDROCHLORIDE
     Indication: DIABETES MELLITUS
     Route: 048
     Dates: start: 20170914
  4. LINEZOLID. [Suspect]
     Active Substance: LINEZOLID
     Indication: TUBERCULOSIS
     Route: 048
     Dates: start: 20171107
  5. CLOFAZIMINE [Suspect]
     Active Substance: CLOFAZIMINE
     Indication: TUBERCULOSIS
     Route: 048
     Dates: start: 20171107, end: 20180516
  6. IMIPENEM [Suspect]
     Active Substance: IMIPENEM
     Indication: TUBERCULOSIS
     Route: 042
     Dates: start: 20171107
  7. CARVEDILOL. [Concomitant]
     Active Substance: CARVEDILOL
     Indication: MYOCARDIAL ISCHAEMIA
     Route: 048
     Dates: start: 20180314
  8. ASPILETS [Concomitant]
     Active Substance: ASPIRIN
     Indication: MYOCARDIAL ISCHAEMIA
     Route: 048
     Dates: start: 20180308
  9. CLOFAZIMINE [Suspect]
     Active Substance: CLOFAZIMINE
     Indication: TUBERCULOSIS
     Route: 048
     Dates: start: 20180518
  10. PARA?AMINOSALICYLIC ACID [Suspect]
     Active Substance: AMINOSALICYLIC ACID
     Indication: TUBERCULOSIS
     Route: 048
     Dates: start: 20171107
  11. BEDAQUILINE [Suspect]
     Active Substance: BEDAQUILINE
     Indication: TUBERCULOSIS
     Route: 048
     Dates: start: 20180518
  12. DELAMANID [Suspect]
     Active Substance: DELAMANID
     Indication: TUBERCULOSIS
     Route: 048
     Dates: start: 20180518
  13. SLOW K [Concomitant]
     Active Substance: POTASSIUM CHLORIDE
     Route: 048
  14. AMOXICILLIN/CLAVULANIC ACID [Suspect]
     Active Substance: AMOXICILLIN\CLAVULANIC ACID
     Indication: TUBERCULOSIS
     Route: 048
     Dates: start: 20171107
  15. ALLOPURINOL. [Concomitant]
     Active Substance: ALLOPURINOL
     Indication: HYPERURICAEMIA
     Route: 048
     Dates: start: 20180423
  16. MAGNESIUM [Concomitant]
     Active Substance: MAGNESIUM
     Route: 048
  17. PYRAZINAMIDE. [Suspect]
     Active Substance: PYRAZINAMIDE
     Indication: TUBERCULOSIS
     Route: 048
     Dates: start: 20171107
  18. ATORVASTATIN [Concomitant]
     Active Substance: ATORVASTATIN
     Indication: MYOCARDIAL ISCHAEMIA
     Route: 048
     Dates: start: 20180308

REACTIONS (4)
  - Electrocardiogram QT prolonged [Recovered/Resolved]
  - Neuropathy peripheral [Not Recovered/Not Resolved]
  - Insomnia [Unknown]
  - Optic neuropathy [Not Recovered/Not Resolved]

NARRATIVE: CASE EVENT DATE: 20180409
